FAERS Safety Report 25020648 (Version 2)
Quarter: 2025Q3

REPORT INFORMATION
  Report Type: Spontaneous
  Country: US (occurrence: US)
  Receive Date: 20250227
  Receipt Date: 20250813
  Transmission Date: 20251020
  Serious: No
  Sender: GALDERMA
  Company Number: US-GALDERMA-US2025001511

PATIENT

DRUGS (1)
  1. NEMLUVIO [Suspect]
     Active Substance: NEMOLIZUMAB-ILTO
     Indication: Product used for unknown indication
     Route: 058

REACTIONS (2)
  - Device malfunction [Recovered/Resolved]
  - Product dose omission issue [Recovered/Resolved]
